FAERS Safety Report 11272367 (Version 2)
Quarter: 2015Q3

REPORT INFORMATION
  Report Type: Report from Study
  Country: BE (occurrence: BE)
  Receive Date: 20150715
  Receipt Date: 20150730
  Transmission Date: 20151125
  Serious: Yes (Hospitalization)
  Sender: FDA-Public Use
  Company Number: BE-BIOGENIDEC-2015BI095682

PATIENT
  Age: 48 Year
  Sex: Male

DRUGS (6)
  1. DCURE [Concomitant]
  2. LORAMET [Concomitant]
     Active Substance: LORMETAZEPAM
  3. ACICLOFIR [Concomitant]
     Indication: ARRHYTHMIA PROPHYLAXIS
     Route: 048
     Dates: start: 20150322, end: 20150430
  4. LEMTRADA [Concomitant]
     Active Substance: ALEMTUZUMAB
     Route: 042
     Dates: start: 20150323, end: 20150331
  5. ATARAX [Concomitant]
     Active Substance: HYDROXYZINE\HYDROXYZINE HYDROCHLORIDE
  6. TYSABRI [Suspect]
     Active Substance: NATALIZUMAB
     Indication: RELAPSING-REMITTING MULTIPLE SCLEROSIS
     Dates: start: 20110110, end: 20150220

REACTIONS (1)
  - Arrhythmia [Recovered/Resolved]

NARRATIVE: CASE EVENT DATE: 20150326
